FAERS Safety Report 15089388 (Version 1)
Quarter: 2018Q2

REPORT INFORMATION
  Report Type: Spontaneous
  Country: US (occurrence: US)
  Receive Date: 20180629
  Receipt Date: 20180629
  Transmission Date: 20180711
  Serious: No
  Sender: FDA-Public Use
  Company Number: US-TARO-2018TAR00427

PATIENT
  Age: 35 Year
  Sex: Female

DRUGS (1)
  1. METRONIDAZOLE GEL USP, 1% [Suspect]
     Active Substance: METRONIDAZOLE
     Dosage: UNK
     Route: 061
     Dates: start: 20180522, end: 201805

REACTIONS (2)
  - Application site reaction [Recovered/Resolved]
  - Product quality issue [Recovered/Resolved]

NARRATIVE: CASE EVENT DATE: 201805
